FAERS Safety Report 7311743-4 (Version None)
Quarter: 2011Q1

REPORT INFORMATION
  Report Type: 
  Country: None (occurrence: None)
  Receive Date: 20110224
  Receipt Date: 20110222
  Transmission Date: 20110831
  Serious: Yes (Death)
  Sender: FDA-Public Use
  Company Number: ES-MERCK-1102ESP00030

PATIENT

DRUGS (1)
  1. INVANZ [Suspect]
     Indication: CHOLECYSTITIS ACUTE
     Route: 042

REACTIONS (2)
  - NO THERAPEUTIC RESPONSE [None]
  - PRE-EXISTING DISEASE [None]
